FAERS Safety Report 18227124 (Version 4)
Quarter: 2021Q4

REPORT INFORMATION
  Report Type: Spontaneous
  Country: US (occurrence: US)
  Receive Date: 20200903
  Receipt Date: 20211008
  Transmission Date: 20220303
  Serious: Yes (Other)
  Sender: FDA-Public Use
  Company Number: US-PFIZER INC-2020340818

PATIENT
  Age: 82 Year
  Sex: Male

DRUGS (1)
  1. LYRICA [Suspect]
     Active Substance: PREGABALIN
     Indication: Periodic limb movement disorder
     Dosage: 75 MG, 1X/DAY  (1 TIME A DAY, AT BEDTIME)
     Route: 048

REACTIONS (7)
  - Myocardial infarction [Unknown]
  - Neuropathy peripheral [Unknown]
  - General physical health deterioration [Unknown]
  - Hyperlipidaemia [Unknown]
  - Tinea infection [Unknown]
  - Diabetic neuropathy [Unknown]
  - Off label use [Unknown]
